FAERS Safety Report 5030189-5 (Version None)
Quarter: 2006Q2

REPORT INFORMATION
  Report Type: 
  Country: None (occurrence: None)
  Receive Date: 20060614
  Receipt Date: 20060525
  Transmission Date: 20061013
  Serious: No
  Sender: FDA-Public Use
  Company Number: FR200606000030

PATIENT
  Age: 29 Year
  Sex: Male

DRUGS (2)
  1. ZYPREXA [Suspect]
     Dosage: 10 MG, DAILY (1/D), ORAL  ; 7.5 MG, DAILY (1/D), ORAL
     Route: 048
     Dates: start: 20020101
  2. XANAX /USA/ (ALPRAZOLAM) [Concomitant]

REACTIONS (7)
  - ANXIETY [None]
  - DRY EYE [None]
  - DRY MOUTH [None]
  - EPISTAXIS [None]
  - FATIGUE [None]
  - MALAISE [None]
  - NASAL DRYNESS [None]
